FAERS Safety Report 5848891-1 (Version None)
Quarter: 2008Q3

REPORT INFORMATION
  Report Type: 
  Country: None (occurrence: None)
  Receive Date: 20080818
  Receipt Date: 20080806
  Transmission Date: 20090109
  Serious: Yes (Life-Threatening)
  Sender: FDA-Public Use
  Company Number: GB-PFIZER INC-2008066342

PATIENT
  Age: 52 Year
  Sex: Female

DRUGS (3)
  1. CHANTIX [Suspect]
     Indication: SMOKING CESSATION THERAPY
  2. BRICANYL [Concomitant]
     Route: 055
  3. PULMICORT-100 [Concomitant]
     Route: 055

REACTIONS (5)
  - ASTHENIA [None]
  - DYSPNOEA [None]
  - MALAISE [None]
  - SWOLLEN TONGUE [None]
  - TONGUE DISORDER [None]
